FAERS Safety Report 8817096 (Version 1)
Quarter: 2012Q4

REPORT INFORMATION
  Report Type: Spontaneous
  Country: US (occurrence: None)
  Receive Date: 20121003
  Receipt Date: 20121003
  Transmission Date: 20130627
  Serious: Yes (Hospitalization)
  Sender: FDA-Public Use
  Company Number: None

PATIENT
  Age: 89 Year
  Sex: Female
  Weight: 54.9 kg

DRUGS (1)
  1. NALOXONE [Suspect]
     Indication: OVERDOSE
     Route: 042

REACTIONS (6)
  - Convulsion [None]
  - Pneumonia pneumococcal [None]
  - Sepsis [None]
  - Atrial fibrillation [None]
  - Hypotension [None]
  - Encephalopathy [None]
